FAERS Safety Report 4988106-X (Version None)
Quarter: 2006Q2

REPORT INFORMATION
  Report Type: 
  Country: None (occurrence: None)
  Receive Date: 20060501
  Receipt Date: 20050906
  Transmission Date: 20061013
  Serious: Yes (Hospitalization, Disabling, Other)
  Sender: FDA-Public Use
  Company Number: US-MERCK-0509USA00760

PATIENT
  Age: 61 Year
  Sex: Male
  Weight: 95 kg

DRUGS (2)
  1. VIOXX [Suspect]
     Indication: ARTHRITIS
     Route: 048
     Dates: start: 20020223, end: 20031027
  2. ZIAC [Concomitant]
     Route: 065

REACTIONS (17)
  - ANXIETY [None]
  - ARTHROPATHY [None]
  - BACK PAIN [None]
  - BRAIN STEM INFARCTION [None]
  - CEREBROVASCULAR ACCIDENT [None]
  - DIVERTICULUM [None]
  - ERECTILE DYSFUNCTION [None]
  - HAEMORRHOIDS [None]
  - HOSTILITY [None]
  - HYPERLIPIDAEMIA [None]
  - HYPERTENSION [None]
  - LUMBAR SPINAL STENOSIS [None]
  - RECTAL HAEMORRHAGE [None]
  - SINUS DISORDER [None]
  - TRANSIENT ISCHAEMIC ATTACK [None]
  - UPPER RESPIRATORY TRACT INFECTION [None]
  - VASOSPASM [None]
